FAERS Safety Report 4830286-0 (Version None)
Quarter: 2005Q4

REPORT INFORMATION
  Report Type: 
  Country: None (occurrence: None)
  Receive Date: 20051114
  Receipt Date: 20051031
  Transmission Date: 20060501
  Serious: Yes (Other)
  Sender: FDA-Public Use
  Company Number: 2005149501

PATIENT
  Age: 37 Year
  Sex: Male
  Weight: 64 kg

DRUGS (3)
  1. AZITHROMYCIN [Suspect]
     Indication: LARYNGOTRACHEITIS
     Dosage: 1000 MG (500 MG, BID), ORAL
     Route: 048
     Dates: start: 20051017, end: 20051019
  2. IBUPROFEN [Concomitant]
  3. PARACETAMOL (PARACETAMOL) [Concomitant]

REACTIONS (4)
  - HENOCH-SCHONLEIN PURPURA [None]
  - JOINT SWELLING [None]
  - PAIN IN EXTREMITY [None]
  - PYREXIA [None]
